FAERS Safety Report 10154914 (Version 1)
Quarter: 2014Q2

REPORT INFORMATION
  Report Type: Spontaneous
  Country: US (occurrence: None)
  Receive Date: 20140505
  Receipt Date: 20140505
  Transmission Date: 20141212
  Serious: Yes (Other)
  Sender: FDA-Public Use
  Company Number: None

PATIENT
  Age: 57 Year
  Sex: Female
  Weight: 77.11 kg

DRUGS (2)
  1. RAPAFLO [Suspect]
     Indication: URINE FLOW DECREASED
     Route: 048
     Dates: start: 20140417, end: 20140426
  2. RAPAFLO [Suspect]
     Indication: CALCULUS URETERIC
     Route: 048
     Dates: start: 20140417, end: 20140426

REACTIONS (3)
  - Vision blurred [None]
  - Migraine [None]
  - Vision blurred [None]
